FAERS Safety Report 16013847 (Version 4)
Quarter: 2019Q3

REPORT INFORMATION
  Report Type: Spontaneous
  Country: US (occurrence: US)
  Receive Date: 20190227
  Receipt Date: 20190918
  Transmission Date: 20191004
  Serious: No
  Sender: FDA-Public Use
  Company Number: US-SA-2019SA053196

PATIENT
  Sex: Female
  Weight: 122 kg

DRUGS (1)
  1. CEREZYME [Suspect]
     Active Substance: IMIGLUCERASE
     Indication: GAUCHER^S DISEASE
     Dosage: 3600 U,EVERY 2 WEEKS
     Route: 041
     Dates: start: 20130828

REACTIONS (3)
  - Weight decreased [Unknown]
  - Malaise [Unknown]
  - Product dose omission [Unknown]
